FAERS Safety Report 8993627 (Version 1)
Quarter: 2013Q1

REPORT INFORMATION
  Report Type: Spontaneous
  Country: FR (occurrence: FR)
  Receive Date: 20130102
  Receipt Date: 20130102
  Transmission Date: 20140127
  Serious: Yes (Hospitalization)
  Sender: FDA-Public Use
  Company Number: FR-ASTRAZENECA-2012SE95558

PATIENT
  Age: 19755 Day
  Sex: Female

DRUGS (4)
  1. CRESTOR [Suspect]
     Route: 048
  2. ALDACTAZINE [Suspect]
     Route: 048
  3. SECTRAL [Suspect]
     Route: 048
  4. TWYNSTA [Suspect]
     Route: 048

REACTIONS (1)
  - Hyponatraemia [Not Recovered/Not Resolved]
